FAERS Safety Report 5941673-1 (Version None)
Quarter: 2008Q4

REPORT INFORMATION
  Report Type: 
  Country: None (occurrence: None)
  Receive Date: 20081105
  Receipt Date: 20081029
  Transmission Date: 20090506
  Serious: Yes (Other)
  Sender: FDA-Public Use
  Company Number: AU-JNJFOC-20081006915

PATIENT
  Age: 34 Year
  Sex: Female

DRUGS (3)
  1. REMICADE [Suspect]
     Indication: CROHN'S DISEASE
     Dosage: PATIENT HAD BEEN OFF INFLIXIMAB FOR 18 MONTHS
     Route: 042
  2. IMURAN [Concomitant]
  3. PREDNISONE TAB [Concomitant]

REACTIONS (5)
  - CHEST DISCOMFORT [None]
  - DYSGEUSIA [None]
  - OEDEMA PERIPHERAL [None]
  - PALPITATIONS [None]
  - PARAESTHESIA [None]
